FAERS Safety Report 12716163 (Version 1)
Quarter: 2016Q3

REPORT INFORMATION
  Report Type: Report from Study
  Country: BR (occurrence: BR)
  Receive Date: 20160906
  Receipt Date: 20160906
  Transmission Date: 20161109
  Serious: Yes (Hospitalization)
  Sender: FDA-Public Use
  Company Number: PHHY2016BR040979

PATIENT
  Sex: Female
  Weight: 42 kg

DRUGS (2)
  1. AROMASIN [Concomitant]
     Active Substance: EXEMESTANE
     Indication: PRODUCT USED FOR UNKNOWN INDICATION
     Route: 065
  2. AFINITOR [Suspect]
     Active Substance: EVEROLIMUS
     Indication: BREAST CANCER METASTATIC
     Dosage: 1 DF, QD
     Route: 048
     Dates: start: 201601

REACTIONS (22)
  - Hypomagnesaemia [Unknown]
  - Cough [Unknown]
  - Malaise [Unknown]
  - Dysphonia [Unknown]
  - Irritability [Unknown]
  - Pain in extremity [Unknown]
  - Pain [Unknown]
  - Herpes dermatitis [Recovering/Resolving]
  - Insomnia [Unknown]
  - Nail bed disorder [Unknown]
  - Back pain [Unknown]
  - Retching [Unknown]
  - Nausea [Unknown]
  - Weight decreased [Unknown]
  - Dysentery [Unknown]
  - Crying [Unknown]
  - Speech disorder [Unknown]
  - Asthenia [Unknown]
  - Acne [Unknown]
  - Malnutrition [Unknown]
  - Eating disorder [Recovering/Resolving]
  - Decreased appetite [Recovering/Resolving]
